FAERS Safety Report 24254112 (Version 2)
Quarter: 2024Q4

REPORT INFORMATION
  Report Type: Spontaneous
  Country: PK (occurrence: PK)
  Receive Date: 20240827
  Receipt Date: 20241021
  Transmission Date: 20250115
  Serious: Yes (Other)
  Sender: PFIZER
  Company Number: PK-PFIZER INC-PV202300175337

PATIENT
  Age: 29 Year
  Sex: Female
  Weight: 64 kg

DRUGS (6)
  1. IXIFI [Suspect]
     Active Substance: INFLIXIMAB-QBTX
     Indication: Ankylosing spondylitis
     Dosage: 200 MG, EVERY 3 MONTHS
     Route: 042
  2. IXIFI [Suspect]
     Active Substance: INFLIXIMAB-QBTX
     Indication: Sacroiliitis
     Dosage: 200 MG, EVERY 2 MONTHS
     Route: 042
     Dates: start: 202403
  3. IXIFI [Suspect]
     Active Substance: INFLIXIMAB-QBTX
     Indication: Autoimmune pancreatitis
  4. PANADOL [Concomitant]
     Active Substance: ACETAMINOPHEN
     Dosage: 1+1+1
  5. CAC [Concomitant]
     Dosage: 1000, 1+0+0
  6. VITRUM [MINERALS NOS;VITAMINS NOS] [Concomitant]
     Dosage: 1+0+0

REACTIONS (9)
  - C-reactive protein increased [Unknown]
  - Back pain [Unknown]
  - Pyrexia [Unknown]
  - Chest pain [Unknown]
  - Red blood cell sedimentation rate increased [Unknown]
  - Aspartate aminotransferase increased [Unknown]
  - Alanine aminotransferase increased [Unknown]
  - Off label use [Unknown]
  - Off label use [Unknown]

NARRATIVE: CASE EVENT DATE: 20230926
